FAERS Safety Report 6223538-3 (Version None)
Quarter: 2009Q2

REPORT INFORMATION
  Report Type: 
  Country: None (occurrence: None)
  Receive Date: 20090610
  Receipt Date: 20090601
  Transmission Date: 20091009
  Serious: Yes (Life-Threatening, Hospitalization)
  Sender: FDA-Public Use
  Company Number: 230387K09USA

PATIENT
  Age: 52 Year
  Sex: Female
  Weight: 64 kg

DRUGS (7)
  1. REBIF [Suspect]
     Indication: MULTIPLE SCLEROSIS
     Dosage: 44 MCG, 3 IN 1 WEEKS, SUBCUTANEOUS
     Route: 058
     Dates: start: 20080725, end: 20081201
  2. REBIF [Suspect]
     Indication: MULTIPLE SCLEROSIS
     Dosage: 44 MCG, 3 IN 1 WEEKS, SUBCUTANEOUS
     Route: 058
     Dates: start: 20081213
  3. VALIUM [Concomitant]
  4. MORPHINE [Concomitant]
  5. PROVIGIL [Concomitant]
  6. SOLUMEDROL (CORTICOSTEROIDS) [Concomitant]
  7. FIORINAL (FIORINAL /00090401/) [Concomitant]

REACTIONS (12)
  - BLISTER [None]
  - BRADYCARDIA [None]
  - CARDIAC ARREST [None]
  - CARDIOMYOPATHY [None]
  - ENDOTRACHEAL INTUBATION COMPLICATION [None]
  - GANGRENE [None]
  - HYPOTENSION [None]
  - INFLAMMATION [None]
  - OEDEMA PERIPHERAL [None]
  - RIB FRACTURE [None]
  - STRESS CARDIOMYOPATHY [None]
  - TACHYCARDIA [None]
